FAERS Safety Report 24259144 (Version 1)
Quarter: 2024Q3

REPORT INFORMATION
  Report Type: Other
  Country: US (occurrence: US)
  Receive Date: 20240828
  Receipt Date: 20240828
  Transmission Date: 20241017
  Serious: Yes (Hospitalization, Other)
  Sender: HLS THERAPEUTICS
  Company Number: US-HLS-202400997

PATIENT
  Sex: Female

DRUGS (3)
  1. CLOZAPINE [Suspect]
     Active Substance: CLOZAPINE
     Indication: Schizoaffective disorder
     Dosage: DOSE WAS BUILT UP TO 450MG ONCE DAILY
     Route: 048
  2. CLOZAPINE [Suspect]
     Active Substance: CLOZAPINE
     Indication: Schizoaffective disorder
     Dosage: MAXIMUM DAILY THERAPEUTIC DOSE OF 500MG
     Route: 065
  3. CLOZAPINE [Suspect]
     Active Substance: CLOZAPINE
     Indication: Schizoaffective disorder
     Dosage: RECEIVED A TOTAL OF 10 DOSES OF IM CLOZAPINE AT?VARYING DOSES OF 6.25 MG ON DAY 1 (EQUIVALENT TO ORA
     Route: 030

REACTIONS (8)
  - Autonomic nervous system imbalance [Unknown]
  - Treatment noncompliance [Unknown]
  - Constipation [Unknown]
  - Off label use [Unknown]
  - Injection site pain [Unknown]
  - Schizoaffective disorder [Recovering/Resolving]
  - Urinary tract infection [Unknown]
  - Thrombocytopenia [Not Recovered/Not Resolved]
